FAERS Safety Report 24048495 (Version 2)
Quarter: 2024Q4

REPORT INFORMATION
  Report Type: Other
  Country: GB (occurrence: GB)
  Receive Date: 20240704
  Receipt Date: 20241221
  Transmission Date: 20250115
  Serious: Yes (Other)
  Sender: BIOCON
  Company Number: CA-TILLOMEDPR-2023-EPL-007244

PATIENT

DRUGS (360)
  1. ADALIMUMAB [Suspect]
     Active Substance: ADALIMUMAB
     Indication: Crohn^s disease
     Dosage: UNK TABLET
     Route: 065
     Dates: start: 201707
  2. ADALIMUMAB [Suspect]
     Active Substance: ADALIMUMAB
     Indication: Colitis ulcerative
     Dosage: UNK, TABLET
     Route: 065
  3. ADALIMUMAB [Suspect]
     Active Substance: ADALIMUMAB
     Indication: Deep vein thrombosis
     Dosage: 8 DOSAGE FORM, SOLUTION
     Route: 058
  4. ADALIMUMAB [Suspect]
     Active Substance: ADALIMUMAB
     Dosage: 8 DOSAGE FORM, SOLUTION FOR INJECTION, TABLET
     Route: 048
     Dates: start: 201707
  5. ADALIMUMAB [Suspect]
     Active Substance: ADALIMUMAB
     Dosage: UNK TABLET
     Route: 058
  6. METFORMIN [Suspect]
     Active Substance: METFORMIN HYDROCHLORIDE
     Indication: Product used for unknown indication
     Dosage: 500 MILLIGRAM (PROLONGED-RELEASE TABLET)
     Route: 065
  7. METFORMIN [Suspect]
     Active Substance: METFORMIN HYDROCHLORIDE
     Dosage: 500 MILLIGRAM, 2 DOSE PER 1 D
     Route: 065
  8. ESOMEPRAZOLE [Suspect]
     Active Substance: ESOMEPRAZOLE
     Indication: Gastritis
     Dosage: POWDER FOR SOLUTION FOR INFUSION
     Route: 065
  9. FELODIPINE [Suspect]
     Active Substance: FELODIPINE
     Indication: Hypertension
     Dosage: 3 MILLIGRAM
     Route: 048
  10. FELODIPINE [Suspect]
     Active Substance: FELODIPINE
     Dosage: 5 MILLIGRAM, Q2D
     Route: 048
  11. GABAPENTIN [Suspect]
     Active Substance: GABAPENTIN
     Indication: Product used for unknown indication
     Dosage: 300 MG
     Route: 065
  12. GABAPENTIN [Suspect]
     Active Substance: GABAPENTIN
     Dosage: 900 MILLIGRAM, Q3D
     Route: 065
  13. ALBENDAZOLE [Suspect]
     Active Substance: ALBENDAZOLE
     Indication: Deep vein thrombosis
     Dosage: UNK
     Route: 042
     Dates: start: 2021
  14. ALBENDAZOLE [Suspect]
     Active Substance: ALBENDAZOLE
     Indication: Colitis ulcerative
     Dosage: UNK
     Route: 042
     Dates: start: 2017, end: 2017
  15. ALBENDAZOLE [Suspect]
     Active Substance: ALBENDAZOLE
     Dosage: UNK
     Route: 048
  16. ASACOL [Suspect]
     Active Substance: MESALAMINE
     Indication: Colitis ulcerative
     Dosage: UNK
     Route: 065
  17. ASACOL [Suspect]
     Active Substance: MESALAMINE
     Dosage: 12 DOSAGE FORM, QD
     Route: 065
  18. ASACOL [Suspect]
     Active Substance: MESALAMINE
     Dosage: 2.4 GRAM, QD
     Route: 065
     Dates: start: 20161001
  19. ASACOL [Suspect]
     Active Substance: MESALAMINE
     Dosage: 3 GRAM, QD
     Route: 065
     Dates: start: 20161001
  20. ASACOL [Suspect]
     Active Substance: MESALAMINE
     Dosage: 4.8 GRAM, QD
     Route: 065
     Dates: start: 20161001
  21. ASACOL [Suspect]
     Active Substance: MESALAMINE
     Dosage: 4.8 GRAM, QD
     Route: 065
  22. ASACOL [Suspect]
     Active Substance: MESALAMINE
     Dosage: 50 MILLIGRAM
     Route: 065
  23. ASACOL [Suspect]
     Active Substance: MESALAMINE
     Dosage: 50 MILLIGRAM
     Route: 065
  24. ASACOL [Suspect]
     Active Substance: MESALAMINE
     Dosage: 12 DOSAGE FORM, Q2D
     Route: 065
  25. ASACOL [Suspect]
     Active Substance: MESALAMINE
     Dosage: 3 GRAM
     Route: 065
  26. ASACOL [Suspect]
     Active Substance: MESALAMINE
     Dosage: 6 DOSAGE FORM, QD
     Route: 065
     Dates: start: 20161001
  27. ASACOL [Suspect]
     Active Substance: MESALAMINE
     Dosage: 1 DOSAGE FORM, QD
     Route: 065
  28. ASACOL [Suspect]
     Active Substance: MESALAMINE
     Dosage: 6 DOSAGE FORM, Q2D
     Route: 065
  29. ASACOL [Suspect]
     Active Substance: MESALAMINE
     Dosage: 3 DOSAGE FORM, Q12H
     Route: 065
     Dates: start: 20161001
  30. ASACOL [Suspect]
     Active Substance: MESALAMINE
     Dosage: 1 DOSAGE FORM, QD
     Route: 048
  31. ASACOL [Suspect]
     Active Substance: MESALAMINE
     Dosage: 40 MILLIGRAM, QD
     Route: 065
  32. ASACOL [Suspect]
     Active Substance: MESALAMINE
     Dosage: 50 MILLIGRAM, QD
     Route: 048
  33. ASACOL [Suspect]
     Active Substance: MESALAMINE
     Dosage: 6 DOSAGE FORM, QD
     Route: 048
  34. ASACOL [Suspect]
     Active Substance: MESALAMINE
     Dosage: 6 DOSAGE FORM, 2 DOSE PER 1 D
     Route: 065
  35. BUDESONIDE [Suspect]
     Active Substance: BUDESONIDE
     Indication: Colitis ulcerative
     Dosage: UNK
     Route: 065
  36. BUDESONIDE [Suspect]
     Active Substance: BUDESONIDE
     Dosage: 1 DOSAGE FORM, 1 DOSE PER 8W
     Route: 048
  37. BUDESONIDE [Suspect]
     Active Substance: BUDESONIDE
     Dosage: 4 DOSAGE FORM
     Route: 065
  38. BUDESONIDE [Suspect]
     Active Substance: BUDESONIDE
     Dosage: 8 DOSAGE FORM, QD
     Route: 048
  39. BUDESONIDE [Suspect]
     Active Substance: BUDESONIDE
     Dosage: 8 DOSAGE FORM, 1 DOSE PER 8W
     Route: 048
     Dates: start: 201707
  40. BUDESONIDE [Suspect]
     Active Substance: BUDESONIDE
     Dosage: UNK UNK, 1 DOSE PER 8W
     Route: 065
  41. BUDESONIDE [Suspect]
     Active Substance: BUDESONIDE
     Dosage: 1 DOSAGE FORM, QD
     Route: 048
     Dates: start: 201707
  42. BUDESONIDE [Suspect]
     Active Substance: BUDESONIDE
     Dosage: UNK, QD
     Route: 048
  43. BUDESONIDE [Suspect]
     Active Substance: BUDESONIDE
     Dosage: 1 DOSAGE FORM, QID
     Route: 048
     Dates: start: 201707
  44. BUDESONIDE [Suspect]
     Active Substance: BUDESONIDE
     Dosage: 8 DOSAGE FORM
     Route: 048
  45. BUDESONIDE [Suspect]
     Active Substance: BUDESONIDE
     Dosage: 245 DOSAGE FORM, QD
     Route: 048
  46. BUDESONIDE [Suspect]
     Active Substance: BUDESONIDE
     Dosage: 212 DOSAGE FORM
     Route: 048
  47. AZD-1222 [Suspect]
     Active Substance: AZD-1222
     Indication: COVID-19 immunisation
     Dosage: UNK
     Route: 065
     Dates: start: 20190319
  48. AZD-1222 [Suspect]
     Active Substance: AZD-1222
     Indication: Adverse drug reaction
     Dosage: 1 MILLILITER
     Route: 065
  49. AZD-1222 [Suspect]
     Active Substance: AZD-1222
     Dosage: UNK
     Route: 065
     Dates: start: 2019, end: 2019
  50. AZD-1222 [Suspect]
     Active Substance: AZD-1222
     Dosage: UNK
     Route: 065
     Dates: start: 20210713, end: 20210713
  51. AZD-1222 [Suspect]
     Active Substance: AZD-1222
     Dosage: UNK
     Route: 065
     Dates: start: 20210130, end: 20210130
  52. AZD-1222 [Suspect]
     Active Substance: AZD-1222
     Dosage: UNK
     Route: 065
     Dates: start: 20210508, end: 20210508
  53. AZD-1222 [Suspect]
     Active Substance: AZD-1222
     Dosage: UNK
     Route: 065
     Dates: start: 20210204, end: 20210204
  54. AZD-1222 [Suspect]
     Active Substance: AZD-1222
     Dosage: UNK
     Route: 065
     Dates: start: 20210521, end: 20210521
  55. AZD-1222 [Suspect]
     Active Substance: AZD-1222
     Dosage: UNK
     Route: 065
     Dates: start: 20210318, end: 20210318
  56. AZD-1222 [Suspect]
     Active Substance: AZD-1222
     Dosage: UNK
     Route: 065
     Dates: start: 20210416, end: 20210416
  57. AZD-1222 [Suspect]
     Active Substance: AZD-1222
     Dosage: UNK
     Route: 065
     Dates: start: 20210215, end: 20210215
  58. AZD-1222 [Suspect]
     Active Substance: AZD-1222
     Dosage: UNK
     Route: 065
     Dates: start: 20210319, end: 20210319
  59. AZD-1222 [Suspect]
     Active Substance: AZD-1222
     Dosage: 0.5 MILLILITER
     Route: 065
     Dates: start: 20210204, end: 20210204
  60. AZD-1222 [Suspect]
     Active Substance: AZD-1222
     Dosage: UNK
     Route: 065
     Dates: start: 20210423, end: 20210423
  61. CORTIFOAM [Suspect]
     Active Substance: HYDROCORTISONE ACETATE
     Indication: Deep vein thrombosis
     Dosage: UNK
     Route: 048
  62. CORTIFOAM [Suspect]
     Active Substance: HYDROCORTISONE ACETATE
     Indication: Colitis ulcerative
     Dosage: UNK
     Route: 065
  63. CORTIFOAM [Suspect]
     Active Substance: HYDROCORTISONE ACETATE
     Dosage: 1 DOSAGE FORM, QD
     Route: 048
     Dates: start: 201707
  64. CORTIFOAM [Suspect]
     Active Substance: HYDROCORTISONE ACETATE
     Dosage: 1 DOSAGE FORM, QD
     Route: 065
  65. CORTIFOAM [Suspect]
     Active Substance: HYDROCORTISONE ACETATE
     Dosage: 8 DOSAGE FORM, 1 DOSE PER 8W
     Route: 048
     Dates: start: 201707
  66. CORTIFOAM [Suspect]
     Active Substance: HYDROCORTISONE ACETATE
     Dosage: UNK UNK, 1 DOSE PER 8W
     Route: 065
  67. CORTIFOAM [Suspect]
     Active Substance: HYDROCORTISONE ACETATE
     Dosage: UNK, QD
     Route: 065
  68. CORTIFOAM [Suspect]
     Active Substance: HYDROCORTISONE ACETATE
     Dosage: 8 DOSAGE FORM
     Route: 048
  69. BUDESONIDE [Suspect]
     Active Substance: BUDESONIDE
     Indication: Colitis ulcerative
     Dosage: UNK
     Route: 048
  70. BUDESONIDE [Suspect]
     Active Substance: BUDESONIDE
     Dosage: UNK
     Route: 065
  71. BUDESONIDE [Suspect]
     Active Substance: BUDESONIDE
     Dosage: 1 DOSAGE FORM, QD
     Route: 048
  72. BUDESONIDE [Suspect]
     Active Substance: BUDESONIDE
     Dosage: 1 DOSAGE FORM, QD
     Route: 065
  73. BUDESONIDE [Suspect]
     Active Substance: BUDESONIDE
     Dosage: 1 DOSAGE FORM, QD
     Route: 065
  74. BUDESONIDE [Suspect]
     Active Substance: BUDESONIDE
     Dosage: 8 DOSAGE FORM, 1 DOSE PER 8W
     Route: 048
     Dates: start: 201707
  75. BUDESONIDE [Suspect]
     Active Substance: BUDESONIDE
     Dosage: 8 DOSAGE FORM, 1 DOSE PER 8W
     Route: 065
  76. BUDESONIDE [Suspect]
     Active Substance: BUDESONIDE
     Dosage: UNK, 1 DOSE PER 8W
     Route: 048
  77. BUDESONIDE [Suspect]
     Active Substance: BUDESONIDE
     Dosage: UNK, 1 DOSE PER 8W
     Route: 065
  78. BUDESONIDE [Suspect]
     Active Substance: BUDESONIDE
     Dosage: 8 DOSAGE FORM
     Route: 048
  79. BUDESONIDE [Suspect]
     Active Substance: BUDESONIDE
     Dosage: 8 DOSAGE FORM, QD
     Route: 048
  80. CORTISONE [Suspect]
     Active Substance: CORTISONE
     Indication: Crohn^s disease
     Dosage: UNK
     Route: 042
  81. CORTISONE [Suspect]
     Active Substance: CORTISONE
     Indication: Colitis ulcerative
     Dosage: UNK UNK, QD
     Route: 065
  82. CORTISONE [Suspect]
     Active Substance: CORTISONE
     Dosage: UNK
     Route: 065
  83. CORTISONE [Suspect]
     Active Substance: CORTISONE
     Dosage: 1 DOSAGE FORM, QD
     Route: 048
  84. CORTISONE [Suspect]
     Active Substance: CORTISONE
     Dosage: 8 DOSAGE FORM, QD
     Route: 048
  85. CORTISONE [Suspect]
     Active Substance: CORTISONE
     Dosage: UNK, 1 DOSE PER 6W
     Route: 065
  86. CORTISONE [Suspect]
     Active Substance: CORTISONE
     Dosage: 8 DOSAGE FORM, 1 DOSE PER 8W
     Route: 048
  87. CORTISONE [Suspect]
     Active Substance: CORTISONE
     Dosage: UNK UNK, 1 DOSE PER 8W
     Route: 048
  88. CORTISONE [Suspect]
     Active Substance: CORTISONE
     Dosage: UNK UNK, 1 DOSE PER 8W
     Route: 048
  89. CORTISONE [Suspect]
     Active Substance: CORTISONE
     Dosage: 8 MILLIGRAM, QWEEK
     Route: 048
  90. CORTISONE [Suspect]
     Active Substance: CORTISONE
     Dosage: 6 MILLIGRAM, QWEEK
     Route: 048
  91. CORTISONE [Suspect]
     Active Substance: CORTISONE
     Dosage: UNK
     Route: 065
  92. DAPAGLIFLOZIN [Suspect]
     Active Substance: DAPAGLIFLOZIN
     Indication: Ill-defined disorder
     Dosage: UNK
     Route: 065
  93. DAPAGLIFLOZIN [Suspect]
     Active Substance: DAPAGLIFLOZIN
     Indication: Cardiac failure chronic
  94. ENTYVIO [Suspect]
     Active Substance: VEDOLIZUMAB
     Indication: Colitis ulcerative
     Dosage: UNK
     Route: 042
  95. ENTYVIO [Suspect]
     Active Substance: VEDOLIZUMAB
     Indication: Deep vein thrombosis
     Dosage: UNK
     Route: 048
  96. ENTYVIO [Suspect]
     Active Substance: VEDOLIZUMAB
     Dosage: 50 MILLIGRAM
     Route: 065
  97. ENTYVIO [Suspect]
     Active Substance: VEDOLIZUMAB
     Dosage: 1 DOSAGE FORM, QD
     Route: 048
  98. ENTYVIO [Suspect]
     Active Substance: VEDOLIZUMAB
     Dosage: 8 DOSAGE FORM, 1 DOSE PER 8W
     Route: 048
  99. ENTYVIO [Suspect]
     Active Substance: VEDOLIZUMAB
     Dosage: UNK
     Route: 065
  100. ENTYVIO [Suspect]
     Active Substance: VEDOLIZUMAB
     Dosage: UNK UNK, QD
     Route: 065
  101. ENTYVIO [Suspect]
     Active Substance: VEDOLIZUMAB
     Dosage: UNK
     Route: 065
  102. ENTYVIO [Suspect]
     Active Substance: VEDOLIZUMAB
     Dosage: UNK
     Route: 042
  103. ENTYVIO [Suspect]
     Active Substance: VEDOLIZUMAB
     Dosage: 200 UNK
     Route: 048
     Dates: start: 2017, end: 2017
  104. ENTYVIO [Suspect]
     Active Substance: VEDOLIZUMAB
     Dosage: 8 DOSAGE FORM
     Route: 042
  105. EPINEPHRINE HYDROCHLORIDE [Suspect]
     Active Substance: EPINEPHRINE HYDROCHLORIDE
     Indication: Product used for unknown indication
     Dosage: UNK
     Route: 065
  106. HYDROCORTISONE [Suspect]
     Active Substance: HYDROCORTISONE
     Indication: Colitis ulcerative
     Dosage: UNK
     Route: 048
  107. HYDROCORTISONE [Suspect]
     Active Substance: HYDROCORTISONE
     Dosage: UNK
     Route: 065
  108. HYDROCORTISONE [Suspect]
     Active Substance: HYDROCORTISONE
     Dosage: 1 DOSAGE FORM, QD
     Route: 048
     Dates: start: 201807
  109. HYDROCORTISONE [Suspect]
     Active Substance: HYDROCORTISONE
     Dosage: 6 DOSAGE FORM, Q2D
     Route: 065
  110. HYDROCORTISONE [Suspect]
     Active Substance: HYDROCORTISONE
     Dosage: 4 DOSAGE FORM
     Route: 065
  111. HYDROCORTISONE [Suspect]
     Active Substance: HYDROCORTISONE
     Dosage: 8 DOSAGE FORM, 1 DOSE PER 8W
     Route: 048
     Dates: start: 201807
  112. HYDROCORTISONE [Suspect]
     Active Substance: HYDROCORTISONE
     Dosage: UNK, 1 DOSE PER 8W
     Route: 065
  113. HYDROCORTISONE [Suspect]
     Active Substance: HYDROCORTISONE
     Dosage: 8 DOSAGE FORM, QD
     Route: 048
  114. HYDROCORTISONE [Suspect]
     Active Substance: HYDROCORTISONE
     Dosage: 6 DOSAGE FORM, QD
     Route: 048
  115. HYDROCORTISONE [Suspect]
     Active Substance: HYDROCORTISONE
     Dosage: 8 DOSAGE FORM, QWEEK
     Route: 048
  116. INFLIXIMAB [Suspect]
     Active Substance: INFLIXIMAB
     Indication: Crohn^s disease
     Dosage: UNK
     Route: 042
     Dates: start: 201709
  117. INFLIXIMAB [Suspect]
     Active Substance: INFLIXIMAB
     Indication: Colitis ulcerative
     Dosage: UNK
     Route: 042
  118. INFLIXIMAB [Suspect]
     Active Substance: INFLIXIMAB
     Dosage: UNK, 1 DOSE PER 6W
     Route: 042
  119. INFLIXIMAB [Suspect]
     Active Substance: INFLIXIMAB
     Dosage: 5 MG/KG
     Route: 042
  120. INFLIXIMAB [Suspect]
     Active Substance: INFLIXIMAB
     Dosage: 5 MG/KG 1 DOSE PER 8W
     Route: 042
     Dates: start: 20170119
  121. INFLIXIMAB [Suspect]
     Active Substance: INFLIXIMAB
     Dosage: 5 MG/KG 1 DOSE PER 8W
     Route: 065
  122. INFLIXIMAB [Suspect]
     Active Substance: INFLIXIMAB
     Dosage: 7 MG/KG 1 DOSE PER 8W
     Route: 042
  123. INFLIXIMAB [Suspect]
     Active Substance: INFLIXIMAB
     Dosage: 7 MG/KG 1 DOSE PER 8W
     Route: 065
  124. INFLIXIMAB [Suspect]
     Active Substance: INFLIXIMAB
     Dosage: UNK, Q2W
     Route: 065
  125. INFLIXIMAB [Suspect]
     Active Substance: INFLIXIMAB
     Dosage: UNK, 1 DOSE PER 8W
     Route: 042
     Dates: start: 20170101, end: 20170901
  126. INFLIXIMAB [Suspect]
     Active Substance: INFLIXIMAB
     Dosage: UNK, Q2W
     Route: 042
  127. INFLIXIMAB [Suspect]
     Active Substance: INFLIXIMAB
     Dosage: UNK, 1 DOSE PER 8W
     Route: 042
  128. INFLIXIMAB [Suspect]
     Active Substance: INFLIXIMAB
     Dosage: 5 MG/KG 1 DOSE PER 8W
     Route: 042
     Dates: start: 20170101, end: 20170901
  129. INFLIXIMAB [Suspect]
     Active Substance: INFLIXIMAB
     Dosage: UNK, 1 DOSE PER 6W
     Route: 065
  130. INFLIXIMAB [Suspect]
     Active Substance: INFLIXIMAB
     Dosage: 120 MG, 1 DOSE PER 8W
     Route: 042
  131. INFLIXIMAB [Suspect]
     Active Substance: INFLIXIMAB
     Dosage: 8 DOSAGE FORM, 1 DOSE PER 8W
     Route: 042
  132. LEVOTHYROXINE SODIUM [Suspect]
     Active Substance: LEVOTHYROXINE SODIUM
     Indication: Product used for unknown indication
     Dosage: 100 MG
     Route: 065
  133. LEVOTHYROXINE SODIUM [Suspect]
     Active Substance: LEVOTHYROXINE SODIUM
     Dosage: 100 MILLIGRAM, QD
     Route: 065
  134. MEBEVERINE HYDROCHLORIDE [Suspect]
     Active Substance: MEBEVERINE HYDROCHLORIDE
     Indication: Product used for unknown indication
     Dosage: 200 MILLIGRAM
     Route: 065
  135. MEBEVERINE HYDROCHLORIDE [Suspect]
     Active Substance: MEBEVERINE HYDROCHLORIDE
     Dosage: 400 MILLIGRAM, Q2D
     Route: 065
  136. MESALAMINE [Suspect]
     Active Substance: MESALAMINE
     Indication: Colitis ulcerative
     Dosage: UNK
     Route: 048
  137. MESALAMINE [Suspect]
     Active Substance: MESALAMINE
     Dosage: UNK
     Route: 048
  138. MESALAMINE [Suspect]
     Active Substance: MESALAMINE
     Dosage: UNK
     Route: 065
  139. MESALAMINE [Suspect]
     Active Substance: MESALAMINE
     Dosage: UNK
     Route: 065
  140. MESALAMINE [Suspect]
     Active Substance: MESALAMINE
     Dosage: UNK
     Route: 065
  141. MESALAMINE [Suspect]
     Active Substance: MESALAMINE
     Dosage: UNK
     Route: 065
  142. MESALAMINE [Suspect]
     Active Substance: MESALAMINE
     Dosage: UNK
     Route: 065
  143. MESALAMINE [Suspect]
     Active Substance: MESALAMINE
     Dosage: UNK
     Route: 065
  144. MESALAMINE [Suspect]
     Active Substance: MESALAMINE
     Dosage: UNK
     Route: 065
  145. MESALAMINE [Suspect]
     Active Substance: MESALAMINE
     Dosage: 1 DOSAGE FORM, QD
     Route: 048
  146. MESALAMINE [Suspect]
     Active Substance: MESALAMINE
     Dosage: 2.4 GRAM, QD
     Route: 065
  147. MESALAMINE [Suspect]
     Active Substance: MESALAMINE
     Dosage: 3 GRAM, QD
     Route: 065
  148. MESALAMINE [Suspect]
     Active Substance: MESALAMINE
     Dosage: 6 DOSAGE FORM, Q2D
     Route: 065
  149. MESALAMINE [Suspect]
     Active Substance: MESALAMINE
     Dosage: 4.8 GRAM
     Route: 065
  150. MESALAMINE [Suspect]
     Active Substance: MESALAMINE
     Dosage: 4.8 MILLIGRAM
     Route: 065
  151. MESALAMINE [Suspect]
     Active Substance: MESALAMINE
     Dosage: 50 MILLIGRAM
     Route: 048
  152. MESALAMINE [Suspect]
     Active Substance: MESALAMINE
     Dosage: 50 MILLIGRAM
     Route: 048
  153. MESALAMINE [Suspect]
     Active Substance: MESALAMINE
     Dosage: 50 MILLIGRAM
     Route: 065
  154. MESALAMINE [Suspect]
     Active Substance: MESALAMINE
     Dosage: 6 DOSAGE FORM, QD
     Route: 065
  155. MESALAMINE [Suspect]
     Active Substance: MESALAMINE
     Dosage: 8 DOSAGE FORM, 1 DOSE PER 8W
     Route: 048
  156. MESALAMINE [Suspect]
     Active Substance: MESALAMINE
     Dosage: 4.8 MILLIGRAM, QD
     Route: 065
  157. MESALAMINE [Suspect]
     Active Substance: MESALAMINE
     Dosage: 50 MILLIGRAM
     Route: 065
  158. MESALAMINE [Suspect]
     Active Substance: MESALAMINE
     Dosage: 50 MILLIGRAM
     Route: 065
  159. MESALAMINE [Suspect]
     Active Substance: MESALAMINE
     Dosage: UNK UNK, QD
     Route: 065
  160. MESALAMINE [Suspect]
     Active Substance: MESALAMINE
     Dosage: 4.8 MILLIGRAM, 1 DOSE PER 1D
     Route: 065
  161. MESALAMINE [Suspect]
     Active Substance: MESALAMINE
     Dosage: 50 MILLIGRAM
     Route: 065
  162. MESALAMINE [Suspect]
     Active Substance: MESALAMINE
     Dosage: 8 DOSAGE FORM, 1 DOSE PER 8W
     Route: 065
  163. MESALAMINE [Suspect]
     Active Substance: MESALAMINE
     Dosage: UNK
     Route: 048
  164. MESALAMINE [Suspect]
     Active Substance: MESALAMINE
     Dosage: 2.4 GRAM, QD
     Route: 065
  165. MESALAMINE [Suspect]
     Active Substance: MESALAMINE
     Dosage: UNK
     Route: 048
  166. MESALAMINE [Suspect]
     Active Substance: MESALAMINE
     Dosage: UNK
     Route: 065
  167. MESALAMINE [Suspect]
     Active Substance: MESALAMINE
     Dosage: 6 DOSAGE FORM, QD
     Route: 048
  168. MESALAMINE [Suspect]
     Active Substance: MESALAMINE
     Dosage: 8 DOSAGE FORM
     Route: 048
  169. OMEPRAZOLE [Suspect]
     Active Substance: OMEPRAZOLE
     Indication: Gastritis
     Dosage: 20 MILLIGRAM
     Route: 065
  170. OMEPRAZOLE [Suspect]
     Active Substance: OMEPRAZOLE
     Dosage: 20 MILLIGRAM, CAPSULE
     Route: 065
  171. OMEPRAZOLE [Suspect]
     Active Substance: OMEPRAZOLE
     Dosage: 20 MILLIGRAM, CAPSULE
     Route: 065
  172. OXYCODONE [Suspect]
     Active Substance: OXYCODONE
     Indication: Product used for unknown indication
     Dosage: 5 MILLIGRAM
     Route: 065
  173. OXYCODONE [Suspect]
     Active Substance: OXYCODONE
     Dosage: 5 MILLIGRAM, 2 DOSE PER 1 D
     Route: 065
  174. ALBENDAZOLE [Suspect]
     Active Substance: ALBENDAZOLE
     Indication: Deep vein thrombosis
     Dosage: UNK
     Route: 042
     Dates: start: 2021
  175. ALBENDAZOLE [Suspect]
     Active Substance: ALBENDAZOLE
     Indication: Colitis ulcerative
     Dosage: UNK
     Route: 042
     Dates: start: 2017, end: 2017
  176. ALBENDAZOLE [Suspect]
     Active Substance: ALBENDAZOLE
     Dosage: UNK
     Route: 048
  177. PARA-AMINOSALICYLIC ACID [Suspect]
     Active Substance: AMINOSALICYLIC ACID
     Indication: Product used for unknown indication
     Dosage: UNK
     Route: 048
  178. PARA-AMINOSALICYLIC ACID [Suspect]
     Active Substance: AMINOSALICYLIC ACID
     Indication: Deep vein thrombosis
  179. PARA-AMINOSALICYLIC ACID [Suspect]
     Active Substance: AMINOSALICYLIC ACID
     Indication: Colitis ulcerative
  180. PREDNISONE [Suspect]
     Active Substance: PREDNISONE
     Indication: Colitis ulcerative
     Dosage: UNK
     Route: 065
     Dates: start: 2017
  181. PREDNISONE [Suspect]
     Active Substance: PREDNISONE
     Dosage: UNK
     Route: 065
  182. PREDNISONE [Suspect]
     Active Substance: PREDNISONE
     Dosage: 40 MILLIGRAM, 1 DOSE PER 1D
     Route: 065
  183. PREDNISONE [Suspect]
     Active Substance: PREDNISONE
     Dosage: 50 MILLIGRAM, 1 DOSE PER 1D
     Route: 065
  184. PREDNISONE [Suspect]
     Active Substance: PREDNISONE
     Dosage: 50 MILLIGRAM
     Route: 065
     Dates: start: 2009, end: 2009
  185. PREDNISONE [Suspect]
     Active Substance: PREDNISONE
     Dosage: UNK
     Route: 065
  186. SULFASALAZINE [Suspect]
     Active Substance: SULFASALAZINE
     Indication: Colitis ulcerative
     Dosage: UNK
     Route: 065
  187. SULFASALAZINE [Suspect]
     Active Substance: SULFASALAZINE
     Indication: Arthritis
     Dosage: UNK
     Route: 065
  188. SULFASALAZINE [Suspect]
     Active Substance: SULFASALAZINE
     Dosage: UNK
     Route: 065
  189. SULFASALAZINE [Suspect]
     Active Substance: SULFASALAZINE
     Dosage: UNK
     Route: 065
  190. SULFASALAZINE [Suspect]
     Active Substance: SULFASALAZINE
     Dosage: UNK
     Route: 065
  191. SULFASALAZINE [Suspect]
     Active Substance: SULFASALAZINE
     Dosage: 3 MILLIGRAM, 1 DOSE PER 1D
     Route: 048
  192. SULFASALAZINE [Suspect]
     Active Substance: SULFASALAZINE
     Dosage: 5 MILLIGRAM, 1 DOSE PER 1D
     Route: 048
  193. SULFASALAZINE [Suspect]
     Active Substance: SULFASALAZINE
     Dosage: UNK
     Route: 065
  194. SULFASALAZINE [Suspect]
     Active Substance: SULFASALAZINE
     Dosage: UNK
     Route: 065
     Dates: start: 20160101, end: 20160101
  195. SULFASALAZINE [Suspect]
     Active Substance: SULFASALAZINE
     Dosage: UNK
     Route: 065
     Dates: start: 20090101, end: 20160101
  196. SULFASALAZINE [Suspect]
     Active Substance: SULFASALAZINE
     Dosage: UNK
     Route: 065
     Dates: start: 201709, end: 201709
  197. SULFASALAZINE [Suspect]
     Active Substance: SULFASALAZINE
     Dosage: UNK
     Route: 065
     Dates: start: 2009, end: 2016
  198. VITAMIN D3 [Suspect]
     Active Substance: CHOLECALCIFEROL
     Indication: Product used for unknown indication
     Dosage: 100 MILLIGRAM
     Route: 065
  199. VITAMIN D3 [Suspect]
     Active Substance: CHOLECALCIFEROL
     Dosage: 100 MILLIGRAM, 1 DOSE PER 1 D
     Route: 065
  200. WARFARIN SODIUM [Suspect]
     Active Substance: WARFARIN SODIUM
     Indication: Deep vein thrombosis
     Dosage: UNK
     Route: 048
  201. WARFARIN SODIUM [Suspect]
     Active Substance: WARFARIN SODIUM
     Indication: Colitis ulcerative
     Dosage: UNK
     Route: 065
     Dates: start: 2019
  202. WARFARIN SODIUM [Suspect]
     Active Substance: WARFARIN SODIUM
     Dosage: 1 DOSAGE FORM, 1 DOSE PER 1D
     Route: 048
  203. WARFARIN SODIUM [Suspect]
     Active Substance: WARFARIN SODIUM
     Dosage: 8 DOSAGE FORM, 1 DOSE PER 8W
     Route: 048
  204. WARFARIN SODIUM [Suspect]
     Active Substance: WARFARIN SODIUM
     Dosage: 8 DOSAGE FORM
     Route: 048
  205. WARFARIN SODIUM [Suspect]
     Active Substance: WARFARIN SODIUM
     Dosage: 1 DOSAGE FORM, 1 DOSE PER 8W
     Route: 048
  206. ASPIRIN [Suspect]
     Active Substance: ASPIRIN
     Indication: Product used for unknown indication
     Dosage: UNK
     Route: 065
  207. ASPIRIN [Suspect]
     Active Substance: ASPIRIN
     Indication: Ill-defined disorder
  208. TOZINAMERAN [Suspect]
     Active Substance: TOZINAMERAN
     Indication: Product used for unknown indication
     Dosage: UNK
     Route: 065
     Dates: start: 20220322, end: 20220322
  209. CHOLECALCIFEROL [Suspect]
     Active Substance: CHOLECALCIFEROL
     Indication: Product used for unknown indication
     Dosage: 100 MILLIGRAM
     Route: 065
  210. CANDESARTAN [Suspect]
     Active Substance: CANDESARTAN
     Indication: Product used for unknown indication
     Dosage: UNK
     Route: 048
     Dates: start: 20230412
  211. CANDESARTAN [Suspect]
     Active Substance: CANDESARTAN
     Indication: Colitis ulcerative
  212. LISDEXAMFETAMINE DIMESYLATE [Suspect]
     Active Substance: LISDEXAMFETAMINE DIMESYLATE
     Indication: Product used for unknown indication
     Dosage: UNK
     Route: 065
  213. WARFARIN SODIUM [Suspect]
     Active Substance: WARFARIN SODIUM
     Indication: Colitis ulcerative
     Dosage: 8 DOSAGE FORM, 1 DOSE PER 8W
     Route: 048
     Dates: start: 201707
  214. WARFARIN SODIUM [Suspect]
     Active Substance: WARFARIN SODIUM
     Indication: Deep vein thrombosis
     Dosage: 1 DOSAGE FORM, QD
     Route: 048
     Dates: start: 201707
  215. WARFARIN SODIUM [Suspect]
     Active Substance: WARFARIN SODIUM
     Dosage: 1 DOSAGE FORM, QD
     Route: 048
     Dates: start: 2009, end: 2009
  216. WARFARIN SODIUM [Suspect]
     Active Substance: WARFARIN SODIUM
     Dosage: UNK
     Route: 048
     Dates: start: 2009, end: 2009
  217. WARFARIN SODIUM [Suspect]
     Active Substance: WARFARIN SODIUM
     Dosage: UNK
     Route: 065
     Dates: start: 2019
  218. WARFARIN [Suspect]
     Active Substance: WARFARIN
     Indication: Deep vein thrombosis
     Dosage: UNK
     Route: 065
     Dates: start: 2009
  219. WARFARIN [Suspect]
     Active Substance: WARFARIN
     Indication: Colitis ulcerative
     Dosage: 8 DOSAGE FORM, 1 DOSE PER 1 D
     Route: 048
     Dates: start: 2009
  220. WARFARIN [Suspect]
     Active Substance: WARFARIN
     Dosage: UNK
     Route: 048
  221. WARFARIN [Suspect]
     Active Substance: WARFARIN
     Dosage: 1 DOSAGE FORM, 1 DOSE PER 1 D
     Route: 048
     Dates: start: 2009
  222. WARFARIN [Suspect]
     Active Substance: WARFARIN
     Dosage: 8 DOSAGE FORM, 1 DOSE PER 8W
     Route: 048
     Dates: start: 2009
  223. VEDOLIZUMAB [Suspect]
     Active Substance: VEDOLIZUMAB
     Indication: Colitis ulcerative
     Dosage: 1 DOSAGE FORM, QD
     Route: 048
  224. VEDOLIZUMAB [Suspect]
     Active Substance: VEDOLIZUMAB
     Indication: Deep vein thrombosis
     Dosage: UNK
     Route: 042
     Dates: start: 2017, end: 2017
  225. MESALAMINE [Suspect]
     Active Substance: MESALAMINE
     Indication: Colitis ulcerative
     Dosage: UNK
     Route: 048
     Dates: start: 20160101, end: 20160101
  226. MESALAMINE [Suspect]
     Active Substance: MESALAMINE
     Dosage: UNK
     Route: 048
     Dates: start: 20160101, end: 201610
  227. MESALAMINE [Suspect]
     Active Substance: MESALAMINE
     Dosage: UNK
     Route: 065
     Dates: start: 201601, end: 201610
  228. MESALAMINE [Suspect]
     Active Substance: MESALAMINE
     Dosage: 2.4 GRAM, TABLET
     Route: 065
  229. MESALAMINE [Suspect]
     Active Substance: MESALAMINE
     Dosage: 2.4 GRAM
     Route: 065
     Dates: start: 201601
  230. MESALAMINE [Suspect]
     Active Substance: MESALAMINE
     Dosage: 50 MILLIGRAM, 1 DOSE PER 1 D
     Route: 065
  231. MESALAMINE [Suspect]
     Active Substance: MESALAMINE
     Dosage: 3 DOSAGE FORM, 2 DOSE PER 1 D
     Route: 065
  232. MESALAMINE [Suspect]
     Active Substance: MESALAMINE
     Dosage: 6 DOSAGE FORM, 1 DOSE PER 1 D
     Route: 065
  233. MESALAMINE [Suspect]
     Active Substance: MESALAMINE
     Dosage: UNK
     Route: 065
  234. MESALAMINE [Suspect]
     Active Substance: MESALAMINE
     Dosage: 40 MILLIGRAM, 1 DOSE PER 1 D
     Route: 065
  235. MESALAMINE [Suspect]
     Active Substance: MESALAMINE
     Dosage: 1 DOSAGE FORM, 1 DOSE PER 1 D
     Route: 065
  236. MESALAMINE [Suspect]
     Active Substance: MESALAMINE
     Dosage: 50 MILLIGRAM
     Route: 065
  237. MESALAMINE [Suspect]
     Active Substance: MESALAMINE
     Dosage: 12 DOSAGE FORM, 1 DOSE PER 1 D
     Route: 065
  238. MESALAMINE [Suspect]
     Active Substance: MESALAMINE
     Dosage: 4.8 GRAM, 1 DOSE PER 1 D
     Route: 065
  239. MESALAMINE [Suspect]
     Active Substance: MESALAMINE
     Dosage: 30 DOSAGE FORM, 2 DOSE PER 1 D
     Route: 065
  240. MESALAMINE [Suspect]
     Active Substance: MESALAMINE
     Dosage: 3 GRAM, 1 DOSE PER 1 D
     Route: 065
  241. MESALAMINE [Suspect]
     Active Substance: MESALAMINE
     Dosage: 24 DOSAGE FORM, 1 DOSE PER 1 D
     Route: 065
  242. MESALAMINE [Suspect]
     Active Substance: MESALAMINE
     Dosage: 6 DOSAGE FORM, 2 DOSE PER 1 D
     Route: 065
  243. MESALAMINE [Suspect]
     Active Substance: MESALAMINE
     Dosage: 2.4 GRAM, TABLET
     Route: 065
     Dates: start: 201601
  244. MESALAMINE [Suspect]
     Active Substance: MESALAMINE
     Dosage: 50 MILLIGRAM
     Route: 048
  245. MESALAMINE [Suspect]
     Active Substance: MESALAMINE
     Dosage: UNK
     Route: 048
  246. MESALAMINE [Suspect]
     Active Substance: MESALAMINE
     Indication: Colitis ulcerative
     Dosage: 6 DOSAGE FORM, QD
     Route: 065
     Dates: start: 20161001
  247. MESALAMINE [Suspect]
     Active Substance: MESALAMINE
     Dosage: 2.4 GRAM, QD
     Route: 065
     Dates: start: 20161001
  248. MESALAMINE [Suspect]
     Active Substance: MESALAMINE
     Dosage: UNK
     Route: 065
     Dates: start: 2017, end: 201709
  249. MESALAMINE [Suspect]
     Active Substance: MESALAMINE
     Dosage: 3 DOSAGE FORM, BID
     Route: 065
     Dates: start: 201610
  250. MESALAMINE [Suspect]
     Active Substance: MESALAMINE
     Dosage: 50 MILLIGRAM
     Route: 065
     Dates: start: 20170101, end: 20170901
  251. MESALAMINE [Suspect]
     Active Substance: MESALAMINE
     Dosage: UNK
     Route: 065
     Dates: start: 20170101, end: 20170901
  252. MESALAMINE [Suspect]
     Active Substance: MESALAMINE
     Dosage: 50 MILLIGRAM
     Route: 065
     Dates: start: 20160101, end: 20161001
  253. MESALAMINE [Suspect]
     Active Substance: MESALAMINE
     Dosage: UNK
     Route: 048
     Dates: start: 20160101, end: 20161001
  254. MESALAMINE [Suspect]
     Active Substance: MESALAMINE
     Dosage: 4.8 GRAM, QD
     Route: 065
     Dates: start: 20161001
  255. MESALAMINE [Suspect]
     Active Substance: MESALAMINE
     Dosage: UNK
     Route: 065
     Dates: start: 201709
  256. MESALAMINE [Suspect]
     Active Substance: MESALAMINE
     Dosage: UNK
     Route: 065
     Dates: start: 201709, end: 201709
  257. MESALAMINE [Suspect]
     Active Substance: MESALAMINE
     Dosage: UNK
     Route: 048
     Dates: start: 20161001
  258. MESALAMINE [Suspect]
     Active Substance: MESALAMINE
     Dosage: 2.4 GRAM
     Route: 065
  259. MESALAMINE [Suspect]
     Active Substance: MESALAMINE
     Dosage: 50 MILLIGRAM
     Route: 065
  260. MESALAMINE [Suspect]
     Active Substance: MESALAMINE
     Dosage: 50 MILLIGRAM
     Route: 065
  261. MESALAMINE [Suspect]
     Active Substance: MESALAMINE
     Dosage: 4.8 GRAM
     Route: 065
  262. MESALAMINE [Suspect]
     Active Substance: MESALAMINE
     Dosage: UNK
     Route: 065
  263. MESALAMINE [Suspect]
     Active Substance: MESALAMINE
     Dosage: UNK
     Route: 065
  264. MESALAMINE [Suspect]
     Active Substance: MESALAMINE
     Dosage: UNK
     Route: 065
  265. MESALAMINE [Suspect]
     Active Substance: MESALAMINE
     Dosage: 3 DOSAGE FORM
     Route: 065
  266. MESALAMINE [Suspect]
     Active Substance: MESALAMINE
     Dosage: 6 DOSAGE FORM
     Route: 065
  267. ESCITALOPRAM [Suspect]
     Active Substance: ESCITALOPRAM OXALATE
     Indication: Product used for unknown indication
     Dosage: 10 MILLIGRAM
     Route: 065
  268. ESCITALOPRAM [Suspect]
     Active Substance: ESCITALOPRAM OXALATE
     Dosage: 10 MILLIGRAM, QD
     Route: 065
  269. FUROSEMIDE [Suspect]
     Active Substance: FUROSEMIDE
     Indication: Product used for unknown indication
     Dosage: 20 MILLIGRAM
     Route: 065
  270. FUROSEMIDE [Suspect]
     Active Substance: FUROSEMIDE
     Dosage: 20 MILLIGRAM, 1 DOSE PER 1 D
     Route: 065
  271. ACETAMINOPHEN [Suspect]
     Active Substance: ACETAMINOPHEN
     Indication: Ill-defined disorder
     Dosage: 500 MILLIGRAM, 4 DOSE PER 1 D
     Route: 065
  272. ACETAMINOPHEN [Suspect]
     Active Substance: ACETAMINOPHEN
     Dosage: UNK
     Route: 065
  273. ACETAMINOPHEN [Suspect]
     Active Substance: ACETAMINOPHEN
     Dosage: 500 MILLIGRAM
     Route: 065
  274. ROSUVASTATIN [Suspect]
     Active Substance: ROSUVASTATIN
     Indication: Blood cholesterol increased
     Dosage: UNK
     Route: 065
  275. ROSUVASTATIN [Suspect]
     Active Substance: ROSUVASTATIN
     Indication: Ill-defined disorder
     Dosage: 10 MILLIGRAM
     Route: 065
  276. ROSUVASTATIN [Suspect]
     Active Substance: ROSUVASTATIN
     Dosage: 10 MILLIGRAM, 1 DOSE PER 1 D
     Route: 065
  277. HUMIRA [Suspect]
     Active Substance: ADALIMUMAB
     Indication: Deep vein thrombosis
     Dosage: UNK
     Route: 065
  278. HUMIRA [Suspect]
     Active Substance: ADALIMUMAB
     Indication: Crohn^s disease
     Dosage: UNK
     Route: 065
  279. HUMIRA [Suspect]
     Active Substance: ADALIMUMAB
     Indication: Colitis ulcerative
     Dosage: 8 DOSAGE FORM
     Route: 065
  280. HUMIRA [Suspect]
     Active Substance: ADALIMUMAB
     Dosage: UNK, 1 DOSE PER 8W
     Route: 065
  281. HUMIRA [Suspect]
     Active Substance: ADALIMUMAB
     Dosage: 8 DOSAGE FORM
     Route: 048
     Dates: start: 201707
  282. HUMIRA [Suspect]
     Active Substance: ADALIMUMAB
     Dosage: 8 DOSAGE FORM
     Route: 058
  283. HUMIRA [Suspect]
     Active Substance: ADALIMUMAB
     Dosage: 38 DOSAGE FORM
     Route: 058
  284. WARFARIN [Suspect]
     Active Substance: WARFARIN
     Indication: Deep vein thrombosis
     Dosage: UNK
     Route: 065
     Dates: start: 2009
  285. WARFARIN [Suspect]
     Active Substance: WARFARIN
     Indication: Colitis ulcerative
     Dosage: 8 DOSAGE FORM, 1 DOSE PER 1 D
     Route: 048
     Dates: start: 2009
  286. WARFARIN [Suspect]
     Active Substance: WARFARIN
     Dosage: UNK
     Route: 048
  287. WARFARIN [Suspect]
     Active Substance: WARFARIN
     Dosage: 1 DOSAGE FORM, 1 DOSE PER 1 D
     Route: 048
     Dates: start: 2009
  288. WARFARIN [Suspect]
     Active Substance: WARFARIN
     Dosage: 8 DOSAGE FORM, 1 DOSE PER 8W
     Route: 048
     Dates: start: 2009
  289. WARFARIN [Suspect]
     Active Substance: WARFARIN
     Dosage: 8 DOSAGE FORM
     Route: 048
     Dates: start: 2009
  290. COMIRNATY (TOZINAMERAN) [Suspect]
     Active Substance: TOZINAMERAN
     Indication: Product used for unknown indication
     Dosage: UNK
     Route: 065
  291. INFLECTRA [Suspect]
     Active Substance: INFLIXIMAB-DYYB
     Indication: Crohn^s disease
     Dosage: UNK
     Route: 065
  292. INFLECTRA [Suspect]
     Active Substance: INFLIXIMAB-DYYB
     Indication: Colitis ulcerative
     Dosage: UNK
     Route: 048
  293. INFLECTRA [Suspect]
     Active Substance: INFLIXIMAB-DYYB
     Dosage: UNK
     Route: 042
  294. INFLECTRA [Suspect]
     Active Substance: INFLIXIMAB-DYYB
     Dosage: UNK
     Route: 065
  295. INFLECTRA [Suspect]
     Active Substance: INFLIXIMAB-DYYB
     Dosage: UNK
     Route: 048
  296. INFLECTRA [Suspect]
     Active Substance: INFLIXIMAB-DYYB
     Dosage: 5 MILLIGRAM PER KILOGRAM
     Route: 042
  297. INFLECTRA [Suspect]
     Active Substance: INFLIXIMAB-DYYB
     Dosage: UNK, 1 DOSE PER 6W
     Route: 065
  298. INFLECTRA [Suspect]
     Active Substance: INFLIXIMAB-DYYB
     Dosage: 1 DOSE PER 8W
     Route: 065
  299. INFLECTRA [Suspect]
     Active Substance: INFLIXIMAB-DYYB
     Dosage: 5 MILLIGRAM PER KILOGRAM, 1 DOSE PER 8W
     Route: 065
  300. MESALAMINE [Suspect]
     Active Substance: MESALAMINE
     Indication: Product used for unknown indication
     Dosage: UNK
     Route: 065
  301. DESOXIMETASONE [Suspect]
     Active Substance: DESOXIMETASONE
     Indication: Crohn^s disease
     Dosage: 1 DOSAGE FORM, QD
     Route: 065
  302. DESOXIMETASONE [Suspect]
     Active Substance: DESOXIMETASONE
     Dosage: 8 DOSAGE FORM, 1 DOSE PER 8W
     Route: 065
  303. DESOXIMETASONE [Suspect]
     Active Substance: DESOXIMETASONE
     Dosage: 8 DOSAGE FORM, QD
     Route: 065
  304. DESOXIMETASONE [Suspect]
     Active Substance: DESOXIMETASONE
     Dosage: 4 DOSAGE FORM
     Route: 065
  305. DESOXIMETASONE [Suspect]
     Active Substance: DESOXIMETASONE
     Dosage: 3 DOSAGE FORM, BID
     Route: 065
  306. VYVANSE [Suspect]
     Active Substance: LISDEXAMFETAMINE DIMESYLATE
     Indication: Attention deficit hyperactivity disorder
     Route: 065
  307. LATANOPROST [Concomitant]
     Active Substance: LATANOPROST
     Indication: Crohn^s disease
     Dosage: UNK
     Route: 065
  308. LATANOPROST [Concomitant]
     Active Substance: LATANOPROST
     Indication: Colitis ulcerative
     Dosage: UNK
     Route: 065
  309. FESOTERODINE FUMARATE [Concomitant]
     Active Substance: FESOTERODINE FUMARATE
     Indication: Product used for unknown indication
     Dosage: UNK
     Route: 065
  310. POLYETHYLENE GLYCOLS [Concomitant]
     Active Substance: POLYETHYLENE GLYCOLS
     Indication: Product used for unknown indication
     Dosage: UNK
     Route: 065
  311. POLYETHYLENE GLYCOL 3350 [Concomitant]
     Active Substance: POLYETHYLENE GLYCOL 3350
     Indication: Ill-defined disorder
     Dosage: UNK
     Route: 065
  312. POLYETHYLENE GLYCOL 3350 [Concomitant]
     Active Substance: POLYETHYLENE GLYCOL 3350
     Dosage: UNK
     Route: 065
  313. AMLODIPINE BESYLATE [Concomitant]
     Active Substance: AMLODIPINE BESYLATE
     Indication: Product used for unknown indication
     Dosage: UNK
     Route: 065
  314. ATORVASTATIN CALCIUM [Concomitant]
     Active Substance: ATORVASTATIN CALCIUM
     Indication: Product used for unknown indication
     Dosage: UNK
     Route: 065
  315. DORZOLAMIDE HYDROCHLORIDE [Concomitant]
     Active Substance: DORZOLAMIDE HYDROCHLORIDE
     Indication: Ill-defined disorder
     Dosage: UNK
     Route: 065
  316. RAMIPRIL [Concomitant]
     Active Substance: RAMIPRIL
     Indication: Ill-defined disorder
     Dosage: UNK
     Route: 065
  317. RIVAROXABAN [Concomitant]
     Active Substance: RIVAROXABAN
     Indication: Ill-defined disorder
     Dosage: UNK
     Route: 065
  318. METHOTREXATE [Concomitant]
     Active Substance: METHOTREXATE
     Indication: Colitis ulcerative
     Dosage: UNK
     Route: 065
  319. METHOTREXATE [Concomitant]
     Active Substance: METHOTREXATE
     Dosage: UNK
     Route: 065
  320. METHOTREXATE [Concomitant]
     Active Substance: METHOTREXATE
     Dosage: UNK
     Route: 065
     Dates: start: 20090101, end: 20160101
  321. METHOTREXATE [Concomitant]
     Active Substance: METHOTREXATE
     Dosage: UNK
     Route: 065
     Dates: start: 201709
  322. METHOTREXATE [Concomitant]
     Active Substance: METHOTREXATE
     Dosage: UNK
     Route: 065
     Dates: start: 201709, end: 201709
  323. METHOTREXATE [Concomitant]
     Active Substance: METHOTREXATE
     Dosage: UNK
     Route: 065
  324. TAMSULOSIN HYDROCHLORIDE [Concomitant]
     Active Substance: TAMSULOSIN HYDROCHLORIDE
     Indication: Ill-defined disorder
     Dosage: UNK
     Route: 065
  325. FOLIC ACID [Concomitant]
     Active Substance: FOLIC ACID
     Indication: Ill-defined disorder
     Dosage: UNK
     Route: 065
  326. XELJANZ [Concomitant]
     Active Substance: TOFACITINIB CITRATE
     Indication: Colitis ulcerative
     Dosage: 10 MILLIGRAM, 2 DOSE PER 1 D
     Route: 048
  327. XELJANZ [Concomitant]
     Active Substance: TOFACITINIB CITRATE
     Dosage: 5 MILLIGRAM, 2 DOSE PER 1D
     Route: 048
  328. XELJANZ [Concomitant]
     Active Substance: TOFACITINIB CITRATE
     Dosage: 10 MILLIGRAM, 1 DOSE PER 1D
     Route: 048
  329. XELJANZ [Concomitant]
     Active Substance: TOFACITINIB CITRATE
     Dosage: 5 MILLIGRAM, 1 DOSE PER 1D
     Route: 048
  330. XELJANZ [Concomitant]
     Active Substance: TOFACITINIB CITRATE
     Dosage: 5 MILLIGRAM
     Route: 048
  331. CLOBETASONE BUTYRATE [Concomitant]
     Active Substance: CLOBETASONE BUTYRATE
     Indication: Ill-defined disorder
     Dosage: UNK
     Route: 065
  332. BISOPROLOL [Concomitant]
     Active Substance: BISOPROLOL
     Indication: Dyscalculia
     Dosage: UNK
     Route: 065
  333. BISOPROLOL [Concomitant]
     Active Substance: BISOPROLOL
     Indication: Ill-defined disorder
  334. EMPAGLIFLOZIN [Concomitant]
     Active Substance: EMPAGLIFLOZIN
     Indication: Ill-defined disorder
     Dosage: UNK
     Route: 065
  335. CITALOPRAM [Concomitant]
     Active Substance: CITALOPRAM
     Indication: Ill-defined disorder
     Dosage: UNK
     Route: 065
  336. PRAVASTATIN [Concomitant]
     Active Substance: PRAVASTATIN
     Indication: Ill-defined disorder
     Dosage: UNK
     Route: 065
  337. LANSOPRAZOLE [Concomitant]
     Active Substance: LANSOPRAZOLE
     Indication: Ill-defined disorder
     Dosage: UNK
     Route: 065
  338. ACETAMINOPHEN [Concomitant]
     Active Substance: ACETAMINOPHEN
     Indication: Product used for unknown indication
     Dosage: UNK
     Route: 065
  339. TETRAHYDROZOLINE HYDROCHLORIDE [Concomitant]
     Active Substance: TETRAHYDROZOLINE HYDROCHLORIDE
     Indication: Product used for unknown indication
     Dosage: UNK
     Route: 065
  340. TETRAHYDROZOLINE HYDROCHLORIDE [Concomitant]
     Active Substance: TETRAHYDROZOLINE HYDROCHLORIDE
     Dosage: EYE DROPS
     Route: 065
  341. NITROFURANTOIN [Concomitant]
     Active Substance: NITROFURANTOIN
     Indication: Ill-defined disorder
     Dosage: UNK
     Route: 065
  342. RENNIE ANTACIDUM [Concomitant]
     Indication: Product used for unknown indication
     Dosage: UNK
     Route: 065
  343. MINERAL OIL [Concomitant]
     Active Substance: MINERAL OIL
     Indication: Product used for unknown indication
     Dosage: UNK
     Route: 065
  344. GAVISCON RELIEF [Concomitant]
     Indication: Product used for unknown indication
     Dosage: UNK
     Route: 065
  345. CALCIUM CARBONATE\CHOLECALCIFEROL [Concomitant]
     Active Substance: CALCIUM CARBONATE\CHOLECALCIFEROL
     Indication: Product used for unknown indication
     Dosage: UNK
     Route: 065
  346. LYRICA [Concomitant]
     Active Substance: PREGABALIN
     Indication: Ill-defined disorder
     Dosage: UNK
     Route: 065
  347. POLYETHYLENE GLYCOL 3350\POTASSIUM CHLORIDE\SODIUM BICARBONATE\SODIUM [Concomitant]
     Active Substance: POLYETHYLENE GLYCOL 3350\POTASSIUM CHLORIDE\SODIUM BICARBONATE\SODIUM CHLORIDE
     Indication: Product used for unknown indication
     Dosage: UNK
     Route: 065
  348. LATANOPROST [Concomitant]
     Active Substance: LATANOPROST
     Indication: Product used for unknown indication
     Dosage: UNK
     Route: 065
  349. BETNOVATE [Concomitant]
     Active Substance: BETAMETHASONE
     Indication: Product used for unknown indication
     Dosage: UNK
     Route: 065
  350. MOVICOLON [Concomitant]
     Active Substance: POLYETHYLENE GLYCOL 3350\POTASSIUM CHLORIDE\SODIUM BICARBONATE\SODIUM CHLORIDE
     Indication: Product used for unknown indication
     Dosage: UNK
     Route: 065
  351. ALGINIC ACID;ALUMINIUM HYDROXIDE GEL, DRIED;MAGNESIUM TRISILICATE;SODI [Concomitant]
     Indication: Product used for unknown indication
     Dosage: UNK
     Route: 065
  352. SODIUM ALGINATE\SODIUM BICARBONATE [Concomitant]
     Active Substance: SODIUM ALGINATE\SODIUM BICARBONATE
     Indication: Product used for unknown indication
     Dosage: UNK CALCIUM CARBONATE
     Route: 065
  353. CALCIUM CARBONATE\CHOLECALCIFEROL [Concomitant]
     Active Substance: CALCIUM CARBONATE\CHOLECALCIFEROL
     Indication: Product used for unknown indication
     Dosage: UNK
     Route: 065
  354. MINERAL OIL [Concomitant]
     Active Substance: MINERAL OIL
     Indication: Ill-defined disorder
     Dosage: UNK
     Route: 065
  355. NAPHAZOLINE HYDROCHLORIDE [Concomitant]
     Active Substance: NAPHAZOLINE HYDROCHLORIDE
     Indication: Ill-defined disorder
     Dosage: UNK
     Route: 065
  356. TOFACITINIB CITRATE [Concomitant]
     Active Substance: TOFACITINIB CITRATE
     Indication: Product used for unknown indication
     Dosage: UNK
     Route: 065
  357. ALUMINIUM HYDROXIDE;CALCIUM CARBONATE;SODIUM ALGINATE;SODIUM BICARBONA [Concomitant]
     Indication: Product used for unknown indication
     Route: 065
  358. PARAFFIN [Concomitant]
     Active Substance: PARAFFIN
     Indication: Product used for unknown indication
     Dosage: UNK
     Route: 065
  359. TETRAHYDROZOLINE HYDROCHLORIDE [Concomitant]
     Active Substance: TETRAHYDROZOLINE HYDROCHLORIDE
     Indication: Crohn^s disease
     Route: 065
  360. TETRAHYDROZOLINE HYDROCHLORIDE [Concomitant]
     Active Substance: TETRAHYDROZOLINE HYDROCHLORIDE
     Indication: Colitis ulcerative

REACTIONS (53)
  - Cardiac murmur [Not Recovered/Not Resolved]
  - Catarrh [Not Recovered/Not Resolved]
  - Condition aggravated [Unknown]
  - Gingival pain [Not Recovered/Not Resolved]
  - Nightmare [Not Recovered/Not Resolved]
  - Somnolence [Not Recovered/Not Resolved]
  - Stress [Not Recovered/Not Resolved]
  - Swollen tongue [Not Recovered/Not Resolved]
  - Tubulointerstitial nephritis [Not Recovered/Not Resolved]
  - Hypopnoea [Not Recovered/Not Resolved]
  - Colitis ulcerative [Not Recovered/Not Resolved]
  - Parosmia [Not Recovered/Not Resolved]
  - Impaired work ability [Not Recovered/Not Resolved]
  - Loss of personal independence in daily activities [Not Recovered/Not Resolved]
  - Impaired quality of life [Unknown]
  - Bronchiectasis [Not Recovered/Not Resolved]
  - Alcohol poisoning [Not Recovered/Not Resolved]
  - Burns second degree [Not Recovered/Not Resolved]
  - Colitis ulcerative [Not Recovered/Not Resolved]
  - Steroid dependence [Not Recovered/Not Resolved]
  - Pain [Not Recovered/Not Resolved]
  - Frequent bowel movements [Not Recovered/Not Resolved]
  - Weight decreased [Not Recovered/Not Resolved]
  - Palpitations [Not Recovered/Not Resolved]
  - Fatigue [Not Recovered/Not Resolved]
  - Dysgeusia [Not Recovered/Not Resolved]
  - Abdominal discomfort [Not Recovered/Not Resolved]
  - Arthritis [Not Recovered/Not Resolved]
  - Depression [Not Recovered/Not Resolved]
  - Deep vein thrombosis [Unknown]
  - Confusional state [Not Recovered/Not Resolved]
  - Pain in extremity [Not Recovered/Not Resolved]
  - Migraine [Not Recovered/Not Resolved]
  - Eczema [Not Recovered/Not Resolved]
  - Vertigo [Not Recovered/Not Resolved]
  - Tinnitus [Not Recovered/Not Resolved]
  - Cerebrovascular accident [Not Recovered/Not Resolved]
  - COVID-19 [Not Recovered/Not Resolved]
  - Pulmonary embolism [Not Recovered/Not Resolved]
  - Haematochezia [Not Recovered/Not Resolved]
  - Rash [Not Recovered/Not Resolved]
  - Pyrexia [Not Recovered/Not Resolved]
  - Rectal haemorrhage [Unknown]
  - Headache [Not Recovered/Not Resolved]
  - Rhinitis [Not Recovered/Not Resolved]
  - Systemic lupus erythematosus [Not Recovered/Not Resolved]
  - Intentional product use issue [Not Recovered/Not Resolved]
  - Medication error [Unknown]
  - Inappropriate schedule of product administration [Not Recovered/Not Resolved]
  - Product use in unapproved indication [Unknown]
  - Off label use [Not Recovered/Not Resolved]
  - Drug ineffective [Unknown]
  - Accidental overdose [Not Recovered/Not Resolved]
